FAERS Safety Report 10228511 (Version 1)
Quarter: 2014Q2

REPORT INFORMATION
  Report Type: Spontaneous
  Country: IT (occurrence: IT)
  Receive Date: 20140610
  Receipt Date: 20140610
  Transmission Date: 20141212
  Serious: Yes (Hospitalization)
  Sender: FDA-Public Use
  Company Number: IT-BAYER-2014-084284

PATIENT
  Age: 72 Year
  Sex: Male

DRUGS (1)
  1. CARDIOASPIRIN [Suspect]
     Indication: ACUTE MYOCARDIAL INFARCTION
     Dosage: 100 MG, QD
     Route: 048
     Dates: start: 20140223

REACTIONS (2)
  - Headache [Recovered/Resolved]
  - Conjunctival hyperaemia [Recovered/Resolved]
